FAERS Safety Report 5189846-2 (Version None)
Quarter: 2006Q4

REPORT INFORMATION
  Report Type: 
  Country: None (occurrence: None)
  Receive Date: 20061218
  Receipt Date: 20061207
  Transmission Date: 20070319
  Serious: No
  Sender: FDA-Public Use
  Company Number: 224624

PATIENT
  Age: 58 Year
  Sex: Female

DRUGS (1)
  1. RAPTIVA [Suspect]
     Indication: PSORIASIS
     Dosage: 80 MG, 1/WEEK
     Dates: start: 20050701

REACTIONS (3)
  - APHTHOUS STOMATITIS [None]
  - SINUSITIS [None]
  - VAGINAL ULCERATION [None]
